FAERS Safety Report 11327159 (Version 2)
Quarter: 2015Q4

REPORT INFORMATION
  Report Type: Spontaneous
  Country: US (occurrence: US)
  Receive Date: 20150731
  Receipt Date: 20151007
  Transmission Date: 20160304
  Serious: Yes (Other)
  Sender: FDA-Public Use
  Company Number: US-BAYER-2015-387393

PATIENT
  Age: 29 Year
  Sex: Female
  Weight: 101.13 kg

DRUGS (1)
  1. MIRENA [Suspect]
     Active Substance: LEVONORGESTREL
     Indication: CONTRACEPTION
     Dosage: 20 MCG/24HR, CONT
     Route: 015
     Dates: start: 20140922, end: 20150805

REACTIONS (2)
  - Ovarian cyst [None]
  - Device dislocation [None]

NARRATIVE: CASE EVENT DATE: 201507
